FAERS Safety Report 23182414 (Version 1)
Quarter: 2023Q4

REPORT INFORMATION
  Report Type: Spontaneous
  Country: US (occurrence: None)
  Receive Date: 20231114
  Receipt Date: 20231114
  Transmission Date: 20240109
  Serious: Yes (Hospitalization)
  Sender: FDA-Public Use
  Company Number: None

PATIENT
  Age: 41 Year
  Sex: Female
  Weight: 89.3 kg

DRUGS (3)
  1. CYTARABINE [Suspect]
     Active Substance: CYTARABINE
     Dates: end: 20230310
  2. METHOTREXATE [Suspect]
     Active Substance: METHOTREXATE
     Dosage: OTHER QUANTITY : 2012.5 MG;?
     Dates: end: 20230307
  3. PONATINIB [Suspect]
     Active Substance: PONATINIB
     Dates: end: 20230330

REACTIONS (10)
  - Febrile neutropenia [None]
  - Bacteraemia [None]
  - Abdominal pain [None]
  - Dyspnoea [None]
  - Abdominal pain upper [None]
  - Abdominal tenderness [None]
  - Hepatic mass [None]
  - Escherichia bacteraemia [None]
  - Liver abscess [None]
  - Diarrhoea [None]

NARRATIVE: CASE EVENT DATE: 20230324
